FAERS Safety Report 7644531-X (Version None)
Quarter: 2011Q3

REPORT INFORMATION
  Report Type: 
  Country: None (occurrence: None)
  Receive Date: 20110729
  Receipt Date: 20110720
  Transmission Date: 20111222
  Serious: Yes (Hospitalization, Other)
  Sender: FDA-Public Use
  Company Number: US-AMGEN-USASP2011036949

PATIENT
  Age: 48 Year
  Sex: Female

DRUGS (1)
  1. SENSIPAR [Suspect]
     Indication: HYPERPARATHYROIDISM
     Dosage: 30 MG, QD

REACTIONS (2)
  - HOSPITALISATION [None]
  - GASTROSTOMY TUBE INSERTION [None]
